FAERS Safety Report 5670714-4 (Version None)
Quarter: 2008Q1

REPORT INFORMATION
  Report Type: 
  Country: None (occurrence: None)
  Receive Date: 20080317
  Receipt Date: 20080317
  Transmission Date: 20080703
  Serious: No
  Sender: FDA-Public Use
  Company Number: None

PATIENT
  Age: 62 Year
  Sex: Female
  Weight: 58.0604 kg

DRUGS (1)
  1. LIPITOR [Suspect]
     Indication: ARTERIOSCLEROSIS
     Dosage: 5MG DAILY
     Dates: start: 20071227, end: 20080307

REACTIONS (12)
  - ABNORMAL BEHAVIOUR [None]
  - ANGER [None]
  - ANHEDONIA [None]
  - ANXIETY [None]
  - ASTHENIA [None]
  - DEPRESSED MOOD [None]
  - FEELING ABNORMAL [None]
  - FEELING JITTERY [None]
  - FEELINGS OF WORTHLESSNESS [None]
  - INSOMNIA [None]
  - NERVOUSNESS [None]
  - PERSONALITY CHANGE [None]
